FAERS Safety Report 25125839 (Version 2)
Quarter: 2025Q2

REPORT INFORMATION
  Report Type: Other
  Country: US (occurrence: US)
  Receive Date: 20250326
  Receipt Date: 20250403
  Transmission Date: 20250717
  Serious: Yes (Hospitalization, Other)
  Sender: OPTINOSE INC
  Company Number: US-OptiNose US, Inc-2025OPT000072

PATIENT
  Age: 69 Year
  Sex: Male

DRUGS (2)
  1. XHANCE [Suspect]
     Active Substance: FLUTICASONE PROPIONATE
     Indication: Nasopharyngitis
     Route: 045
  2. SUMATRIPTAN [Concomitant]
     Active Substance: SUMATRIPTAN
     Indication: Migraine
     Route: 065

REACTIONS (3)
  - Osteomyelitis fungal [Recovered/Resolved]
  - Headache [Recovered/Resolved]
  - Off label use [Unknown]
